FAERS Safety Report 4361360-3 (Version None)
Quarter: 2004Q2

REPORT INFORMATION
  Report Type: 
  Country: None (occurrence: None)
  Receive Date: 20040517
  Receipt Date: 20040505
  Transmission Date: 20050107
  Serious: Yes (Death)
  Sender: FDA-Public Use
  Company Number: 03P-163-0244708-00

PATIENT
  Age: 44 Year
  Sex: Male

DRUGS (2)
  1. NORVIR [Suspect]
     Indication: HIV INFECTION
     Dosage: 200 MG, PER ORAL
     Route: 048
     Dates: start: 20030821, end: 20031207
  2. SAQUINAVIR [Concomitant]

REACTIONS (1)
  - DEATH [None]
